FAERS Safety Report 9414304 (Version 3)
Quarter: 2013Q3

REPORT INFORMATION
  Report Type: Spontaneous
  Country: JP (occurrence: None)
  Receive Date: 20130614
  Receipt Date: 20130815
  Transmission Date: 20140515
  Serious: Yes (Hospitalization)
  Sender: FDA-Public Use
  Company Number: ADR-2013-00994

PATIENT
  Age: 48 Year
  Sex: Male

DRUGS (1)
  1. GABALON INTRATHECAL [Suspect]

REACTIONS (1)
  - Subarachnoid haemorrhage [None]
